FAERS Safety Report 10006132 (Version 1)
Quarter: 2014Q1

REPORT INFORMATION
  Report Type: Report from Study
  Country: US (occurrence: US)
  Receive Date: 20140313
  Receipt Date: 20140313
  Transmission Date: 20141002
  Serious: Yes (Hospitalization)
  Sender: FDA-Public Use
  Company Number: US-MERCK-1403USA004958

PATIENT
  Sex: Male
  Weight: 109.9 kg

DRUGS (4)
  1. VORINOSTAT [Suspect]
     Indication: MYELODYSPLASTIC SYNDROME
     Dosage: ARM 3 CYCLE = 28 DAYS 300 MG BID ON DAYS 3-9
     Route: 048
     Dates: start: 20140131
  2. VORINOSTAT [Suspect]
     Dosage: RM 3 CYCLE = 28 DAYS 300 MG BID ON DAYS 3-9
     Route: 048
     Dates: start: 20140228, end: 20140306
  3. AZACITIDINE [Suspect]
     Indication: MYELODYSPLASTIC SYNDROME
     Dosage: ARM 3 CYCLE 28 DAYS 75 MG/M2 SQ OR IV ON DAYS 1-7 OR 75 MG/M2 SQ OF IV ON DAYS 1-55 AND 8-9
     Dates: start: 20140131
  4. AZACITIDINE [Suspect]
     Dosage: ARM 3 CYCLE 28 DAYS 75 MG/M2 SQ OR IV ON DAYS 1-7 OR 75 MG/M2 SQ OF IV ON DAYS 1-55 AND 8-9
     Dates: start: 20140228, end: 20140306

REACTIONS (1)
  - Pericardial effusion [Recovering/Resolving]
